FAERS Safety Report 19408239 (Version 2)
Quarter: 2021Q2

REPORT INFORMATION
  Report Type: Report from Study
  Country: GB (occurrence: GB)
  Receive Date: 20210611
  Receipt Date: 20210621
  Transmission Date: 20210717
  Serious: Yes (Life-Threatening)
  Sender: FDA-Public Use
  Company Number: GB-PFIZER INC-2021664657

PATIENT
  Age: 64 Year
  Sex: Female

DRUGS (3)
  1. DAUNORUBICIN [Suspect]
     Active Substance: DAUNORUBICIN
     Dosage: UNK
     Dates: start: 20210226, end: 20210302
  2. CYTARABINE. [Suspect]
     Active Substance: CYTARABINE
     Dosage: UNK
     Dates: start: 20210226, end: 20210307
  3. MYLOTARG [Suspect]
     Active Substance: GEMTUZUMAB OZOGAMICIN
     Dosage: 3 MG/M2, SINGLE, OVER A 2 HOUR PERIOD
     Route: 042
     Dates: start: 20210226, end: 20210226

REACTIONS (1)
  - Pulmonary oedema [Recovered/Resolved]

NARRATIVE: CASE EVENT DATE: 20210326
